FAERS Safety Report 7761985-9 (Version None)
Quarter: 2011Q3

REPORT INFORMATION
  Report Type: 
  Country: None (occurrence: None)
  Receive Date: 20110920
  Receipt Date: 20110915
  Transmission Date: 20111222
  Serious: Yes (Disabling)
  Sender: FDA-Public Use
  Company Number: DE-SANOFI-AVENTIS-2011SA046141

PATIENT
  Age: 48 Year
  Sex: Male
  Weight: 100 kg

DRUGS (6)
  1. NEBIVOLOL HCL [Suspect]
     Indication: HYPERTENSION
     Route: 048
     Dates: start: 20101001, end: 20110217
  2. NEBIVOLOL HCL [Suspect]
     Indication: TACHYCARDIA
     Route: 048
     Dates: start: 20101001, end: 20110217
  3. ATACAND [Concomitant]
     Indication: HYPERTENSION
     Route: 048
     Dates: start: 20070101
  4. ASPIRIN [Concomitant]
     Indication: PLATELET AGGREGATION INHIBITION
     Route: 048
     Dates: start: 20000101
  5. SPIROPENT [Concomitant]
     Route: 048
     Dates: start: 20000101
  6. MULTAQ [Suspect]
     Route: 048
     Dates: start: 20110212, end: 20110217

REACTIONS (2)
  - BLOOD PRESSURE DECREASED [None]
  - DIARRHOEA [None]
